FAERS Safety Report 9101426 (Version 1)
Quarter: 2013Q1

REPORT INFORMATION
  Report Type: Spontaneous
  Country: US (occurrence: US)
  Receive Date: 20130218
  Receipt Date: 20130218
  Transmission Date: 20140127
  Serious: Yes (Death)
  Sender: FDA-Public Use
  Company Number: US-COVIDIEN/TYCO HEALTHCARE/MALLINCKRODT-T201300612

PATIENT
  Age: 57 Year
  Sex: Male

DRUGS (6)
  1. MORPHINE [Suspect]
     Dosage: UNK
  2. TRAMADOL [Suspect]
  3. TAPENTADOL [Suspect]
  4. CITALOPRAM [Suspect]
  5. AMITRIPTYLINE [Suspect]
  6. MIRTAZAPINE [Suspect]

REACTIONS (1)
  - Death [Fatal]
